FAERS Safety Report 18940477 (Version 1)
Quarter: 2021Q1

REPORT INFORMATION
  Report Type: Spontaneous
  Country: CH (occurrence: CH)
  Receive Date: 20210225
  Receipt Date: 20210225
  Transmission Date: 20210420
  Serious: Yes (Hospitalization, Other)
  Sender: FDA-Public Use
  Company Number: CH-PFIZER INC-2021165598

PATIENT
  Age: 56 Year
  Sex: Female
  Weight: 60 kg

DRUGS (6)
  1. NEURONTIN [Suspect]
     Active Substance: GABAPENTIN
     Indication: MULTIPLE SCLEROSIS
     Dosage: 300 MG (DOSING: 300MG ? 300MG ? 400MG ?0)
     Route: 048
  2. OCREVUS [Suspect]
     Active Substance: OCRELIZUMAB
     Indication: MULTIPLE SCLEROSIS
     Dosage: 600 MG, CYCLIC (EVERY SIX MONTHS)
     Route: 040
     Dates: start: 201807
  3. FAMPYRA [Suspect]
     Active Substance: DALFAMPRIDINE
     Indication: MULTIPLE SCLEROSIS
     Dosage: 20 MG, 2X/DAY
     Route: 048
     Dates: start: 20201120
  4. BETMIGA [Suspect]
     Active Substance: MIRABEGRON
     Indication: HYPERTONIC BLADDER
     Dosage: 50 MG, 1X/DAY
  5. BUCCO?TANTUM [Concomitant]
     Dosage: 6X/DAY,AS NEEDED
     Route: 002
     Dates: start: 20201212
  6. NEURONTIN [Suspect]
     Active Substance: GABAPENTIN
     Dosage: 400 MG (DOSAGE: 300MG ? 300MG ? 400MG ? 0)

REACTIONS (6)
  - C-reactive protein increased [Unknown]
  - Hepatosplenomegaly [Unknown]
  - Petechiae [Recovering/Resolving]
  - Mucosal ulceration [Recovering/Resolving]
  - Hypochromic anaemia [Unknown]
  - Immune thrombocytopenia [Recovered/Resolved]

NARRATIVE: CASE EVENT DATE: 20201211
